FAERS Safety Report 25760739 (Version 2)
Quarter: 2025Q3

REPORT INFORMATION
  Report Type: Spontaneous
  Country: EU (occurrence: EU)
  Receive Date: 20250904
  Receipt Date: 20250926
  Transmission Date: 20251021
  Serious: Yes (Disabling)
  Sender: TEVA
  Company Number: None

PATIENT
  Age: 21 Year
  Sex: Male
  Weight: 74 kg

DRUGS (3)
  1. RISPERIDONE [Suspect]
     Active Substance: RISPERIDONE
     Indication: Psychotic disorder
     Route: 048
     Dates: start: 20220501, end: 20220530
  2. TAVOR [Concomitant]
     Indication: Product used for unknown indication
  3. RIVOTRIL [Concomitant]
     Active Substance: CLONAZEPAM
     Indication: Product used for unknown indication

REACTIONS (8)
  - Dyspnoea [Unknown]
  - Pain [Unknown]
  - Loss of libido [Unknown]
  - Muscle spasms [Unknown]
  - Ejaculation failure [Unknown]
  - Pulmonary pain [Unknown]
  - Fatigue [Unknown]
  - Akathisia [Unknown]

NARRATIVE: CASE EVENT DATE: 20220501
